FAERS Safety Report 12726928 (Version 3)
Quarter: 2016Q4

REPORT INFORMATION
  Report Type: Spontaneous
  Country: US (occurrence: US)
  Receive Date: 20160908
  Receipt Date: 20161018
  Transmission Date: 20170207
  Serious: Yes (Death)
  Sender: FDA-Public Use
  Company Number: US-JNJFOC-20160903454

PATIENT
  Age: 67 Year
  Sex: Female

DRUGS (1)
  1. BENADRYL [Suspect]
     Active Substance: DIPHENHYDRAMINE HYDROCHLORIDE
     Indication: SUICIDE ATTEMPT
     Dosage: 200 TABLETS
     Route: 048
     Dates: start: 201608

REACTIONS (1)
  - Intentional overdose [Fatal]

NARRATIVE: CASE EVENT DATE: 201608
